FAERS Safety Report 6877802-5 (Version None)
Quarter: 2010Q3

REPORT INFORMATION
  Report Type: 
  Country: None (occurrence: None)
  Receive Date: 20100727
  Receipt Date: 20100414
  Transmission Date: 20110219
  Serious: No
  Sender: FDA-Public Use
  Company Number: US-ABBOTT-10P-163-0632921-00

PATIENT
  Sex: Male
  Weight: 65.83 kg

DRUGS (6)
  1. SYNTHROID [Suspect]
     Indication: HYPOTHYROIDISM
     Dosage: UNKNOWN LOWER DOSE
  2. SYNTHROID [Suspect]
     Route: 048
  3. SYNTHROID [Suspect]
     Dosage: UNKNOWN DOSE, BUT INCREASED
  4. VESICARE [Suspect]
     Indication: PRODUCT USED FOR UNKNOWN INDICATION
     Route: 048
     Dates: end: 20100301
  5. ANDROGEL [Suspect]
     Indication: SEXUAL DYSFUNCTION
     Route: 061
     Dates: end: 20100301
  6. OMEPRAZOLE DR [Concomitant]
     Indication: GASTROOESOPHAGEAL REFLUX DISEASE
     Route: 048

REACTIONS (5)
  - MUSCULOSKELETAL PAIN [None]
  - NERVOUSNESS [None]
  - PAIN IN EXTREMITY [None]
  - TREMOR [None]
  - VISION BLURRED [None]
